FAERS Safety Report 20145508 (Version 6)
Quarter: 2021Q4

REPORT INFORMATION
  Report Type: Report from Study
  Country: UA (occurrence: None)
  Receive Date: 20211203
  Receipt Date: 20211230
  Transmission Date: 20220303
  Serious: Yes (Hospitalization)
  Sender: FDA-Public Use
  Company Number: UA-Eisai Medical Research-EC-2021-103852

PATIENT
  Age: 50 Year
  Sex: Male
  Weight: 61.6 kg

DRUGS (5)
  1. LENVATINIB [Suspect]
     Active Substance: LENVATINIB
     Indication: Clear cell renal cell carcinoma
     Route: 048
     Dates: start: 20210617, end: 20211118
  2. PEMBROLIZUMAB [Suspect]
     Active Substance: PEMBROLIZUMAB
     Indication: Clear cell renal cell carcinoma
     Route: 041
     Dates: start: 20210617, end: 20210909
  3. PEMBROLIZUMAB [Suspect]
     Active Substance: PEMBROLIZUMAB
     Route: 041
     Dates: start: 20211021, end: 20211021
  4. MORPHINE HYDROCHLORIDE [Concomitant]
     Active Substance: MORPHINE HYDROCHLORIDE
     Dates: start: 20210312
  5. HEPTRAL [ADEMETIONINE 1,4-BUTANEDISULFONATE] [Concomitant]
     Route: 042
     Dates: start: 20211110, end: 20211115

REACTIONS (1)
  - Pelvic venous thrombosis [Not Recovered/Not Resolved]

NARRATIVE: CASE EVENT DATE: 20211118
